FAERS Safety Report 8237839-0 (Version None)
Quarter: 2012Q1

REPORT INFORMATION
  Report Type: 
  Country: None (occurrence: None)
  Receive Date: 20120327
  Receipt Date: 20120315
  Transmission Date: 20120608
  Serious: Yes (Death, Life-Threatening, Hospitalization, Other)
  Sender: FDA-Public Use
  Company Number: SE-SANOFI-AVENTIS-F03200900085

PATIENT
  Age: 61 Year
  Sex: Male
  Weight: 95 kg

DRUGS (9)
  1. PIPERACILLIN AND TAZOBACTAM [Concomitant]
     Indication: INFECTION
     Route: 042
  2. PIPERACILLIN AND TAZOBACTAM [Concomitant]
     Indication: NEUTROPENIA
     Route: 042
  3. PIPERACILLIN AND TAZOBACTAM [Concomitant]
     Route: 042
  4. CYCLOPHOSPHAMIDE [Suspect]
     Dosage: DOSE TEXT: 250 MG/M2 FOR 3 DAYSUNIT DOSE: 250 MG/M2
     Route: 048
     Dates: start: 20090312, end: 20090314
  5. VALTREX [Concomitant]
     Indication: HERPES VIRUS INFECTION
     Dosage: UNIT DOSE: 500 MG
     Route: 048
     Dates: start: 20090401, end: 20090427
  6. IBUPROFEN [Concomitant]
     Route: 065
  7. FLUDARABINE PHOSPHATE [Suspect]
     Dosage: DOSE TEXT: 40MG/M2 FOR 3 DAYSUNIT DOSE: 40 MG/M2
     Route: 048
     Dates: start: 20090312
  8. ZOPICLONE [Concomitant]
     Indication: INSOMNIA
     Dosage: UNIT DOSE: 5 MG
     Route: 048
     Dates: start: 20090423, end: 20090428
  9. ALVEDON [Concomitant]
     Dates: start: 20090420, end: 20090427

REACTIONS (4)
  - NEUTROPENIA [None]
  - SEPSIS [None]
  - HEPATIC FAILURE [None]
  - PHARYNGITIS [None]
